APPROVED DRUG PRODUCT: DAPTOMYCIN
Active Ingredient: DAPTOMYCIN
Strength: 500MG/VIAL
Dosage Form/Route: POWDER;INTRAVENOUS
Application: A212250 | Product #001 | TE Code: AP
Applicant: HISUN PHARMACEUTICAL HANGZHOU CO LTD
Approved: Apr 21, 2021 | RLD: No | RS: No | Type: RX